FAERS Safety Report 5037548-5 (Version None)
Quarter: 2006Q2

REPORT INFORMATION
  Report Type: 
  Country: None (occurrence: None)
  Receive Date: 20060628
  Receipt Date: 20060526
  Transmission Date: 20061013
  Serious: Yes (Hospitalization)
  Sender: FDA-Public Use
  Company Number: JP-ROCHE-449898

PATIENT
  Age: 50 Year
  Sex: Male

DRUGS (3)
  1. PEGASYS [Suspect]
     Route: 058
     Dates: start: 20060106
  2. AMLODIN [Concomitant]
     Route: 048
     Dates: start: 20060127, end: 20060406
  3. ENALAPRIL MALEATE [Concomitant]
     Dosage: DRUG REPORTED AS CALNATE (ENALAPRIL MALEATE).
     Route: 048
     Dates: start: 20060407

REACTIONS (2)
  - BLOOD PRESSURE DECREASED [None]
  - CONVULSION [None]
